FAERS Safety Report 9026251 (Version 1)
Quarter: 2012Q4

REPORT INFORMATION
  Report Type: Spontaneous
  Country: US (occurrence: None)
  Receive Date: 20121214
  Receipt Date: 20121214
  Transmission Date: 20130627
  Serious: Yes (Other)
  Sender: FDA-Public Use
  Company Number: None

PATIENT
  Sex: Female

DRUGS (1)
  1. FERRLECIT [Suspect]
     Indication: ANEMIA
     Dosage: 200mg one time IV
     Route: 042
     Dates: start: 20121203, end: 20121203

REACTIONS (4)
  - Headache [None]
  - Abdominal pain [None]
  - Pharyngeal disorder [None]
  - Discomfort [None]
